FAERS Safety Report 5015401-0 (Version None)
Quarter: 2006Q2

REPORT INFORMATION
  Report Type: 
  Country: None (occurrence: None)
  Receive Date: 20060530
  Receipt Date: 20060530
  Transmission Date: 20061013
  Serious: Yes (Death)
  Sender: FDA-Public Use
  Company Number: None

PATIENT
  Age: 46 Year
  Sex: Male
  Weight: 83.9154 kg

DRUGS (2)
  1. PEG-INTRON [Suspect]
     Indication: HEPATITIS C
     Dates: start: 20001101, end: 20010901
  2. RIBAVIRIN [Suspect]
     Indication: HEPATITIS C
     Dates: start: 20041201, end: 20050901

REACTIONS (10)
  - ARRHYTHMIA [None]
  - ARTHRALGIA [None]
  - COAGULOPATHY [None]
  - DIARRHOEA HAEMORRHAGIC [None]
  - DIPLOPIA [None]
  - EPISTAXIS [None]
  - FATIGUE [None]
  - HAEMORRHAGE [None]
  - IMPAIRED WORK ABILITY [None]
  - MALAISE [None]
